FAERS Safety Report 6434841-6 (Version None)
Quarter: 2009Q4

REPORT INFORMATION
  Report Type: 
  Country: None (occurrence: None)
  Receive Date: 20091110
  Receipt Date: 20091028
  Transmission Date: 20100525
  Serious: No
  Sender: FDA-Public Use
  Company Number: US-JNJFOC-20091008966

PATIENT
  Sex: Male
  Weight: 83.46 kg

DRUGS (2)
  1. FENTANYL TRANSDERMAL SYSTEM [Suspect]
     Indication: BACK PAIN
     Dosage: NDC#: 0781-7114-55
     Route: 062
     Dates: start: 20091027
  2. PERCOCET [Concomitant]
     Indication: BACK PAIN
     Dosage: 10/325
     Route: 048
     Dates: start: 20020101

REACTIONS (1)
  - WRONG TECHNIQUE IN DRUG USAGE PROCESS [None]
